FAERS Safety Report 18973683 (Version 2)
Quarter: 2021Q1

REPORT INFORMATION
  Report Type: Spontaneous
  Country: US (occurrence: US)
  Receive Date: 20210305
  Receipt Date: 20210331
  Transmission Date: 20210420
  Serious: No
  Sender: FDA-Public Use
  Company Number: US-ASTRAZENECA-2021A039593

PATIENT
  Age: 22375 Day
  Sex: Female
  Weight: 77.1 kg

DRUGS (3)
  1. FASENRA [Suspect]
     Active Substance: BENRALIZUMAB
     Indication: DYSPNOEA
     Route: 058
     Dates: start: 20210202
  2. FLONASE [Concomitant]
     Active Substance: FLUTICASONE PROPIONATE
  3. DIAMISTA [Concomitant]

REACTIONS (5)
  - Seasonal allergy [Unknown]
  - Sneezing [Unknown]
  - Rhinorrhoea [Unknown]
  - Lacrimation increased [Unknown]
  - Dysgeusia [Unknown]

NARRATIVE: CASE EVENT DATE: 20210202
